FAERS Safety Report 7640390-X (Version None)
Quarter: 2011Q3

REPORT INFORMATION
  Report Type: 
  Country: None (occurrence: None)
  Receive Date: 20110728
  Receipt Date: 20110720
  Transmission Date: 20111222
  Serious: Yes (Hospitalization)
  Sender: FDA-Public Use
  Company Number: GB-BIOGENIDEC-2011BI003622

PATIENT
  Age: 47 Year
  Sex: Female

DRUGS (8)
  1. PREGABALIN [Concomitant]
  2. ARCOXIA [Concomitant]
  3. AVONEX [Suspect]
     Indication: MULTIPLE SCLEROSIS
     Route: 030
     Dates: start: 20090701
  4. FOLIC ACID [Concomitant]
  5. AMITRIPTYLINE HCL [Concomitant]
  6. NIFEDIPRESS [Concomitant]
  7. STEROIDS (NOS) [Concomitant]
  8. METHOTREXATE [Concomitant]

REACTIONS (7)
  - INFLUENZA LIKE ILLNESS [None]
  - VISUAL IMPAIRMENT [None]
  - CATARACT [None]
  - RESTLESSNESS [None]
  - PAIN [None]
  - INJECTION SITE PAIN [None]
  - ARTHRALGIA [None]
